FAERS Safety Report 18873771 (Version 2)
Quarter: 2021Q1

REPORT INFORMATION
  Report Type: Spontaneous
  Country: US (occurrence: US)
  Receive Date: 20210210
  Receipt Date: 20210224
  Transmission Date: 20210420
  Serious: No
  Sender: FDA-Public Use
  Company Number: US-TAKEDA-2021TUS006219

PATIENT
  Sex: Female

DRUGS (3)
  1. NINLARO [Suspect]
     Active Substance: IXAZOMIB CITRATE
     Indication: PRODUCT USED FOR UNKNOWN INDICATION
     Dosage: 4 MILLIGRAM
     Route: 048
  2. VELCADE [Suspect]
     Active Substance: BORTEZOMIB
     Indication: PRODUCT USED FOR UNKNOWN INDICATION
     Dosage: UNK
     Route: 065
  3. SELINEXOR [Suspect]
     Active Substance: SELINEXOR
     Indication: PRODUCT USED FOR UNKNOWN INDICATION
     Dosage: 80 MILLIGRAM, 1/WEEK
     Route: 065
     Dates: start: 20201203

REACTIONS (9)
  - Candida infection [Unknown]
  - Nightmare [Unknown]
  - Vertigo [Unknown]
  - Vomiting [Unknown]
  - Product dose omission issue [Unknown]
  - Diarrhoea [Unknown]
  - Hordeolum [Unknown]
  - Weight decreased [Unknown]
  - Somnolence [Unknown]
